FAERS Safety Report 25407958 (Version 4)
Quarter: 2025Q3

REPORT INFORMATION
  Report Type: Spontaneous
  Country: EU (occurrence: EU)
  Receive Date: 20250606
  Receipt Date: 20250926
  Transmission Date: 20251020
  Serious: Yes (Life-Threatening, Hospitalization, Other)
  Sender: MYLAN
  Company Number: EU-SANDOZ-SDZ2025PL035357

PATIENT
  Age: 65 Year
  Sex: Female

DRUGS (16)
  1. IMATINIB [Suspect]
     Active Substance: IMATINIB
     Indication: Philadelphia positive acute lymphocytic leukaemia
     Dosage: UNK, QD (200?400 MG DAILY)
     Dates: start: 202107
  2. IMATINIB [Suspect]
     Active Substance: IMATINIB
     Dosage: UNK, QD (200?400 MG DAILY)
     Route: 065
     Dates: start: 202107
  3. IMATINIB [Suspect]
     Active Substance: IMATINIB
     Dosage: UNK, QD (200?400 MG DAILY)
     Route: 065
     Dates: start: 202107
  4. IMATINIB [Suspect]
     Active Substance: IMATINIB
     Dosage: UNK, QD (200?400 MG DAILY)
     Dates: start: 202107
  5. DASATINIB [Suspect]
     Active Substance: DASATINIB
     Indication: Philadelphia positive acute lymphocytic leukaemia
     Dosage: 140 MILLIGRAM, QD
     Dates: start: 202307
  6. DASATINIB [Suspect]
     Active Substance: DASATINIB
     Indication: B-cell type acute leukaemia
     Dosage: 140 MILLIGRAM, QD
     Dates: start: 202307
  7. DASATINIB [Suspect]
     Active Substance: DASATINIB
     Indication: Acute lymphocytic leukaemia
     Dosage: 140 MILLIGRAM, QD
     Route: 065
     Dates: start: 202307
  8. DASATINIB [Suspect]
     Active Substance: DASATINIB
     Dosage: 140 MILLIGRAM, QD
     Route: 065
     Dates: start: 202307
  9. DASATINIB [Suspect]
     Active Substance: DASATINIB
     Dosage: 100 MILLIGRAM, QD
  10. DASATINIB [Suspect]
     Active Substance: DASATINIB
     Dosage: 100 MILLIGRAM, QD
  11. DASATINIB [Suspect]
     Active Substance: DASATINIB
     Dosage: 100 MILLIGRAM, QD
     Route: 065
  12. DASATINIB [Suspect]
     Active Substance: DASATINIB
     Dosage: 100 MILLIGRAM, QD
     Route: 065
  13. DEXAMETHASONE [Concomitant]
     Active Substance: DEXAMETHASONE
     Indication: Philadelphia positive acute lymphocytic leukaemia
     Dosage: 40 MILLIGRAM, QD
     Dates: start: 202307
  14. DEXAMETHASONE [Concomitant]
     Active Substance: DEXAMETHASONE
     Indication: B-cell type acute leukaemia
     Dosage: 40 MILLIGRAM, QD
     Route: 065
     Dates: start: 202307
  15. DEXAMETHASONE [Concomitant]
     Active Substance: DEXAMETHASONE
     Indication: Acute lymphocytic leukaemia
     Dosage: 40 MILLIGRAM, QD
     Route: 065
     Dates: start: 202307
  16. DEXAMETHASONE [Concomitant]
     Active Substance: DEXAMETHASONE
     Dosage: 40 MILLIGRAM, QD
     Dates: start: 202307

REACTIONS (6)
  - Neutropenia [Unknown]
  - Haematotoxicity [Unknown]
  - Drug resistance [Unknown]
  - Gastrointestinal toxicity [Unknown]
  - Disease recurrence [Unknown]
  - Gene mutation [Unknown]

NARRATIVE: CASE EVENT DATE: 20231201
